FAERS Safety Report 13274588 (Version 2)
Quarter: 2017Q1

REPORT INFORMATION
  Report Type: Other
  Country: US (occurrence: US)
  Receive Date: 20170227
  Receipt Date: 20170329
  Transmission Date: 20170428
  Serious: Yes (Hospitalization, Other)
  Sender: FDA-Public Use
  Company Number: US-SHIRE-US201703270

PATIENT
  Age: 47 Year
  Sex: Female

DRUGS (1)
  1. NATPARA (PARATHYROID HORMONE) [Suspect]
     Active Substance: PARATHYROID HORMONE
     Indication: HYPOPARATHYROIDISM
     Dosage: 50 ?G, UNKNOWN
     Route: 058
     Dates: start: 20160304

REACTIONS (8)
  - Nephrolithiasis [Unknown]
  - Abasia [Not Recovered/Not Resolved]
  - Groin pain [Unknown]
  - Arthralgia [Not Recovered/Not Resolved]
  - Kidney infection [Unknown]
  - Osteonecrosis [Recovering/Resolving]
  - Urinary tract infection [Unknown]
  - Muscle spasms [Unknown]

NARRATIVE: CASE EVENT DATE: 20160923
